FAERS Safety Report 17394255 (Version 1)
Quarter: 2020Q1

REPORT INFORMATION
  Report Type: Report from Study
  Country: BR (occurrence: BR)
  Receive Date: 20200210
  Receipt Date: 20200210
  Transmission Date: 20200409
  Serious: Yes (Other)
  Sender: FDA-Public Use
  Company Number: BR-BRISTOL-MYERS SQUIBB COMPANY-BMS-2019-057603

PATIENT
  Sex: Female

DRUGS (1)
  1. ABATACEPT [Suspect]
     Active Substance: ABATACEPT
     Indication: RHEUMATOID ARTHRITIS
     Dosage: 1000 MILLIGRAM, QMO
     Route: 042

REACTIONS (5)
  - Influenza [Recovering/Resolving]
  - Arthralgia [Unknown]
  - Spinal disorder [Unknown]
  - Hand deformity [Unknown]
  - Cough [Not Recovered/Not Resolved]
